FAERS Safety Report 9717504 (Version 1)
Quarter: 2013Q4

REPORT INFORMATION
  Report Type: Spontaneous
  Country: US (occurrence: US)
  Receive Date: 20131127
  Receipt Date: 20131127
  Transmission Date: 20140711
  Serious: No
  Sender: FDA-Public Use
  Company Number: US-GILEAD-2009-0020412

PATIENT
  Sex: Female
  Weight: 92.08 kg

DRUGS (10)
  1. LETAIRIS [Suspect]
     Indication: PULMONARY ARTERIAL HYPERTENSION
     Route: 048
     Dates: start: 20090202
  2. REVATIO [Concomitant]
  3. LASIX [Concomitant]
  4. DIOVAN [Concomitant]
  5. CARDIZEM CD [Concomitant]
  6. HUMALOG [Concomitant]
  7. LANTUS [Concomitant]
  8. LEVOTHYROXINE [Concomitant]
  9. FISH OIL [Concomitant]
  10. POTASSIUM CHLORIDE [Concomitant]

REACTIONS (2)
  - Oedema [Unknown]
  - Dyspnoea [Unknown]
